FAERS Safety Report 9203133 (Version 1)
Quarter: 2013Q1

REPORT INFORMATION
  Report Type: Spontaneous
  Country: US (occurrence: None)
  Receive Date: 20130329
  Receipt Date: 20130329
  Transmission Date: 20140127
  Serious: Yes (Death, Other)
  Sender: FDA-Public Use
  Company Number: JPI-P-030897

PATIENT
  Age: 59 Year
  Sex: Female
  Weight: 63.5 kg

DRUGS (12)
  1. XYREM (500 MILLIGRAM/MILLILITERS, SOLUTION) (SODIUM OXYBATE) [Suspect]
     Indication: SLEEP DISORDER
     Route: 048
     Dates: start: 201208
  2. DIAZEPAM [Concomitant]
  3. TRAZODONE [Concomitant]
  4. NORCO [Concomitant]
  5. CYMBALTA [Concomitant]
  6. CYCLOBENZAPRINE HCL [Concomitant]
  7. OXYBUTYNIN [Concomitant]
  8. ATENOLOL [Concomitant]
  9. NEURONTIN [Concomitant]
  10. LORATADINE [Concomitant]
  11. DOQLACE [Concomitant]
  12. OTC MUCOUS RELIEF [Concomitant]

REACTIONS (4)
  - Respiratory failure [None]
  - Loss of consciousness [None]
  - Feeling abnormal [None]
  - Feeling abnormal [None]
